FAERS Safety Report 9490748 (Version 1)
Quarter: 2013Q3

REPORT INFORMATION
  Report Type: Spontaneous
  Country: DE (occurrence: None)
  Receive Date: 20130826
  Receipt Date: 20130826
  Transmission Date: 20140515
  Serious: Yes (Congenital Anomaly, Other)
  Sender: FDA-Public Use
  Company Number: GER/GER/13/0034231

PATIENT
  Age: 1 Day
  Sex: Male
  Weight: 2.11 kg

DRUGS (1)
  1. METFORMIN [Suspect]
     Indication: PRODUCT USED FOR UNKNOWN INDICATION
     Dosage: 3 IN 1 D
     Route: 064

REACTIONS (10)
  - Hypospadias [None]
  - Urethral valves [None]
  - Atrial septal defect [None]
  - Dysmorphism [None]
  - Adactyly [None]
  - Maternal drugs affecting foetus [None]
  - Premature baby [None]
  - Caesarean section [None]
  - Developmental coordination disorder [None]
  - Developmental delay [None]
